FAERS Safety Report 7288470-5 (Version None)
Quarter: 2011Q1

REPORT INFORMATION
  Report Type: 
  Country: None (occurrence: None)
  Receive Date: 20110211
  Receipt Date: 20110203
  Transmission Date: 20110831
  Serious: Yes (Death)
  Sender: FDA-Public Use
  Company Number: B0698507A

PATIENT
  Sex: Male
  Weight: 50 kg

DRUGS (52)
  1. GRAN [Concomitant]
     Dosage: 450MCG PER DAY
     Dates: start: 20060110, end: 20060120
  2. URALYT [Concomitant]
     Dosage: 6IUAX PER DAY
     Route: 048
     Dates: start: 20060126, end: 20060207
  3. SOLU-CORTEF [Concomitant]
     Dosage: 200MG PER DAY
     Route: 042
     Dates: start: 20060105, end: 20060212
  4. PRIMPERAN TAB [Concomitant]
     Dosage: 10MG PER DAY
     Dates: start: 20060107, end: 20060209
  5. ISOTONIC SODIUM CHLORIDE SOLUTION [Concomitant]
     Dosage: 500ML PER DAY
     Route: 042
     Dates: start: 20060109, end: 20060109
  6. PREDONINE [Concomitant]
     Route: 048
     Dates: start: 20051227, end: 20060107
  7. ZOVIRAX [Concomitant]
     Dosage: 600MG PER DAY
     Route: 048
     Dates: start: 20051229, end: 20060117
  8. DIFLUCAN [Concomitant]
     Dosage: 200MG PER DAY
     Route: 048
     Dates: start: 20051229, end: 20060119
  9. FUROSEMIDE [Concomitant]
     Dosage: 20MG PER DAY
     Route: 048
     Dates: start: 20060104, end: 20060115
  10. PENTAZOCINE LACTATE [Concomitant]
     Dosage: 1.5ML PER DAY
     Dates: start: 20060114, end: 20060130
  11. IMMUNE GLOBULIN INTRAVENOUS (HUMAN) [Concomitant]
     Dosage: 7500MG PER DAY
     Route: 042
     Dates: start: 20060116
  12. ANTHROBIN P [Concomitant]
     Dosage: 1.5IU3 PER DAY
     Route: 042
     Dates: start: 20060120, end: 20060122
  13. NEO-MINOPHAGEN-C [Concomitant]
     Dosage: 40ML PER DAY
     Route: 042
     Dates: start: 20060120, end: 20060202
  14. VFEND [Concomitant]
     Dosage: 400MG PER DAY
     Route: 042
     Dates: start: 20060124, end: 20060130
  15. ALKERAN [Suspect]
     Indication: STEM CELL TRANSPLANT
     Dosage: 70MGM2 PER DAY
     Route: 042
     Dates: start: 20060102, end: 20060103
  16. ZANTAC [Concomitant]
     Dosage: 300MG PER DAY
     Route: 048
     Dates: start: 20051223, end: 20060119
  17. URSO 250 [Concomitant]
     Dosage: 600MG PER DAY
     Route: 048
     Dates: start: 20051229, end: 20060119
  18. MOHRUS TAPE [Concomitant]
     Route: 062
     Dates: start: 20051229, end: 20060111
  19. ALDACTONE [Concomitant]
     Dosage: 50MG PER DAY
     Route: 048
     Dates: start: 20060104, end: 20060107
  20. GENTACIN [Concomitant]
     Route: 061
     Dates: start: 20060127, end: 20060127
  21. LACTEC [Concomitant]
     Dosage: 1000ML PER DAY
     Route: 042
     Dates: start: 20060124, end: 20060212
  22. FLUDARA [Concomitant]
     Dosage: 30MGM2 PER DAY
     Route: 042
     Dates: start: 20051229, end: 20060101
  23. ISCOTIN [Concomitant]
     Dosage: 300MG PER DAY
     Route: 048
     Dates: start: 20051229, end: 20060117
  24. ISODINE GARGLE [Concomitant]
     Route: 002
     Dates: start: 20060102, end: 20060115
  25. MODACIN [Concomitant]
     Dosage: 4G PER DAY
     Route: 042
     Dates: start: 20060101, end: 20060106
  26. IMMUNE GLOBULIN INTRAVENOUS (HUMAN) [Concomitant]
     Dosage: 5000MG PER DAY
     Route: 042
     Dates: start: 20060109, end: 20060109
  27. CYCLOSPORINE [Concomitant]
     Indication: IMMUNOSUPPRESSION
     Dosage: 150MG PER DAY
     Route: 042
     Dates: start: 20060104, end: 20060830
  28. FOIPAN [Concomitant]
     Dosage: 300MG PER DAY
     Route: 048
     Dates: start: 20060106, end: 20060117
  29. RAMELTEON [Concomitant]
     Dosage: .3MG PER DAY
     Route: 042
     Dates: start: 20051229, end: 20060103
  30. POTASSIUM CHLORIDE [Concomitant]
     Dosage: 20ML PER DAY
     Route: 042
     Dates: start: 20060123, end: 20060127
  31. ADONA (AC-17) [Concomitant]
     Dosage: 100MG PER DAY
     Dates: start: 20060124, end: 20060127
  32. FUNGIZONE [Concomitant]
     Dosage: 120ML PER DAY
     Route: 002
     Dates: start: 20051223, end: 20060126
  33. ROHYPNOL [Concomitant]
     Dosage: 2MG PER DAY
     Route: 048
     Dates: start: 20051223, end: 20060118
  34. CRAVIT [Concomitant]
     Dosage: 600MG PER DAY
     Route: 048
     Dates: start: 20051229, end: 20060108
  35. ZYLORIC [Concomitant]
     Dosage: 100MG PER DAY
     Route: 048
     Dates: start: 20060125, end: 20060207
  36. FLURBIPROFEN [Concomitant]
     Dosage: 50MG PER DAY
     Route: 042
     Dates: start: 20060102, end: 20060126
  37. FUROSEMIDE [Concomitant]
     Route: 042
     Dates: start: 20060112, end: 20060130
  38. PENTAZOCINE LACTATE [Concomitant]
     Dosage: 15MG PER DAY
     Dates: start: 20060116, end: 20060126
  39. NEOPHYLLIN INJECTION [Concomitant]
     Dosage: 250MG PER DAY
     Route: 042
     Dates: start: 20060119, end: 20060123
  40. ZANTAC [Concomitant]
     Dosage: 100MG PER DAY
     Dates: start: 20060120, end: 20060202
  41. SOLU-MEDROL [Concomitant]
     Dosage: 50MG PER DAY
     Route: 042
     Dates: start: 20060128, end: 20060306
  42. LACTEC-G [Concomitant]
     Dosage: 500ML PER DAY
     Route: 042
     Dates: start: 20060109, end: 20060110
  43. SOLDEM [Concomitant]
     Route: 042
     Dates: start: 20060110, end: 20060205
  44. HAPTOGLOBIN [Concomitant]
     Dosage: 2IU3 PER DAY
     Route: 042
     Dates: start: 20060105, end: 20060105
  45. MEROPENEM [Concomitant]
     Dosage: 2G PER DAY
     Route: 042
     Dates: start: 20060107, end: 20060125
  46. ALBUMIN (HUMAN) [Concomitant]
     Route: 042
     Dates: start: 20060111, end: 20060130
  47. GANCICLOVIR [Concomitant]
     Dosage: 125MG PER DAY
     Dates: start: 20060116, end: 20060224
  48. THIAMINE + PYRIDOXINE + HYDROXYCOBALAMIN [Concomitant]
     Dosage: 10ML PER DAY
     Route: 042
     Dates: start: 20060128, end: 20060206
  49. BAKTAR [Concomitant]
     Dosage: 1IUAX PER DAY
     Route: 048
     Dates: start: 20051223, end: 20060104
  50. FUROSEMIDE [Concomitant]
     Dosage: 100MG PER DAY
     Route: 042
     Dates: start: 20060120, end: 20060123
  51. PRODIF [Concomitant]
     Dosage: 100MG PER DAY
     Route: 042
     Dates: start: 20060121, end: 20060123
  52. CIPROFLOXACIN HCL [Concomitant]
     Dosage: 600MG PER DAY
     Route: 042
     Dates: start: 20060126, end: 20060203

REACTIONS (1)
  - ACUTE MYELOID LEUKAEMIA [None]
